FAERS Safety Report 12656026 (Version 1)
Quarter: 2016Q3

REPORT INFORMATION
  Report Type: Spontaneous
  Country: US (occurrence: US)
  Receive Date: 20160816
  Receipt Date: 20160816
  Transmission Date: 20161109
  Serious: No
  Sender: FDA-Public Use
  Company Number: US-ROCHE-1628773

PATIENT
  Age: 55 Year
  Sex: Male

DRUGS (6)
  1. ALBUTEROL. [Concomitant]
     Active Substance: ALBUTEROL
  2. PEGASYS [Suspect]
     Active Substance: PEGINTERFERON ALFA-2A
     Indication: HEPATITIS C
     Route: 058
     Dates: start: 20150701
  3. SOVALDI [Suspect]
     Active Substance: SOFOSBUVIR
     Indication: HEPATITIS C
     Route: 048
     Dates: start: 20150701
  4. NAPROXEN. [Concomitant]
     Active Substance: NAPROXEN
     Route: 065
  5. RIBAVIRIN. [Suspect]
     Active Substance: RIBAVIRIN
     Indication: HEPATITIS C
     Route: 048
     Dates: start: 20150701
  6. IBUPROFEN. [Concomitant]
     Active Substance: IBUPROFEN

REACTIONS (7)
  - Nausea [Unknown]
  - Confusional state [Unknown]
  - Headache [Unknown]
  - Insomnia [Unknown]
  - Diarrhoea [Unknown]
  - Fatigue [Unknown]
  - Influenza like illness [Unknown]

NARRATIVE: CASE EVENT DATE: 20150817
